FAERS Safety Report 10516473 (Version 1)
Quarter: 2014Q4

REPORT INFORMATION
  Report Type: Spontaneous
  Country: US (occurrence: US)
  Receive Date: 20141014
  Receipt Date: 20141014
  Transmission Date: 20150528
  Serious: Yes (Other)
  Sender: FDA-Public Use
  Company Number: US-PFIZER INC-2014277952

PATIENT
  Sex: Female

DRUGS (2)
  1. SUTENT [Suspect]
     Active Substance: SUNITINIB MALATE
     Dosage: TWO WEEKS ON AND 1 WEEK OFF
     Dates: end: 2013
  2. SUTENT [Suspect]
     Active Substance: SUNITINIB MALATE
     Indication: RENAL CELL CARCINOMA
     Dosage: 50 MG, (FOUR WEEKS ON AND TWO WEEKS OFF) CYCLIC
     Dates: start: 2007

REACTIONS (8)
  - Endometrial cancer [Unknown]
  - Hypertension [Unknown]
  - Diarrhoea [Unknown]
  - Disease progression [Unknown]
  - Fatigue [Unknown]
  - Palmar-plantar erythrodysaesthesia syndrome [Unknown]
  - Second primary malignancy [Unknown]
  - Renal cell carcinoma [Unknown]
